FAERS Safety Report 15781140 (Version 2)
Quarter: 2019Q1

REPORT INFORMATION
  Report Type: Report from Study
  Country: US (occurrence: US)
  Receive Date: 20190102
  Receipt Date: 20190123
  Transmission Date: 20190417
  Serious: Yes (Life-Threatening, Hospitalization, Other)
  Sender: FDA-Public Use
  Company Number: US-UCBSA-2018026852

PATIENT
  Age: 44 Year
  Sex: Female
  Weight: 71 kg

DRUGS (19)
  1. BRIVARACETAM [Suspect]
     Active Substance: BRIVARACETAM
     Indication: EPILEPSY
     Dosage: 50 MG, 2X/DAY (BID)
     Route: 048
     Dates: start: 20180224, end: 20180302
  2. TIZANIDINE. [Suspect]
     Active Substance: TIZANIDINE
     Dosage: 30-100 TABLETS OF 4 MG
     Route: 048
     Dates: start: 20180913, end: 20180913
  3. LORAZEPAM. [Concomitant]
     Active Substance: LORAZEPAM
     Indication: SUICIDE ATTEMPT
     Dosage: 1 MG, 6X/DAY
     Route: 042
     Dates: start: 20180913
  4. VIMPAT [Suspect]
     Active Substance: LACOSAMIDE
     Indication: EPILEPSY
     Dosage: 150 MG, 2X/DAY (BID)
     Route: 048
     Dates: start: 201705, end: 20180810
  5. LAMOTRIGINE. [Concomitant]
     Active Substance: LAMOTRIGINE
     Indication: PRODUCT USED FOR UNKNOWN INDICATION
  6. ZOLOFT [Concomitant]
     Active Substance: SERTRALINE HYDROCHLORIDE
     Dosage: 100 MG, ONCE DAILY (QD)
     Route: 048
     Dates: start: 201807, end: 20181014
  7. VENLAFAXINE [Concomitant]
     Active Substance: VENLAFAXINE HYDROCHLORIDE
     Indication: DEPRESSION
     Dosage: 37.5 MG, 2X/DAY (BID)
     Route: 048
     Dates: start: 20181015
  8. TIZANIDINE. [Suspect]
     Active Substance: TIZANIDINE
     Dosage: 550 MG, TOTAL
     Route: 048
     Dates: start: 20180414, end: 20180414
  9. LACTATED RINGERS SOLUTION [Concomitant]
     Active Substance: CALCIUM CHLORIDE\POTASSIUM CHLORIDE\SODIUM CHLORIDE\SODIUM LACTATE
     Indication: PRODUCT USED FOR UNKNOWN INDICATION
     Dosage: 75 ML/HOUR
     Dates: start: 20180913
  10. BRIVARACETAM [Suspect]
     Active Substance: BRIVARACETAM
     Dosage: 150 MG, 2X/DAY (BID)
     Route: 048
     Dates: start: 20180814
  11. VIMPAT [Suspect]
     Active Substance: LACOSAMIDE
     Dosage: 200 MG, 2X/DAY (BID)
     Route: 048
     Dates: start: 20180811
  12. TIZANIDINE. [Suspect]
     Active Substance: TIZANIDINE
     Dosage: 4 MG, 4X/DAY (QID)
     Route: 048
     Dates: start: 201809, end: 20180918
  13. CLONAZEPAM. [Concomitant]
     Active Substance: CLONAZEPAM
     Indication: ANXIETY
     Dosage: 0.5 MG, 2X/DAY (BID)
     Route: 048
     Dates: start: 2010
  14. ZOLOFT [Concomitant]
     Active Substance: SERTRALINE HYDROCHLORIDE
     Indication: DEPRESSION
     Dosage: 50 MG, ONCE DAILY (QD)
     Dates: start: 201804, end: 201807
  15. HEPARIN [Concomitant]
     Active Substance: HEPARIN SODIUM
     Indication: PRODUCT USED FOR UNKNOWN INDICATION
     Dosage: 5000 IU, 3X/DAY (TID)
     Dates: start: 20180913
  16. BRIVARACETAM [Suspect]
     Active Substance: BRIVARACETAM
     Dosage: 75 MG, 2X/DAY (BID)
     Route: 048
     Dates: start: 20180810, end: 201808
  17. IBUPROFEN. [Concomitant]
     Active Substance: IBUPROFEN
     Indication: NECK PAIN
     Dosage: 400 MG, AS NEEDED (PRN)
     Route: 048
     Dates: start: 2010
  18. BRIVARACETAM [Suspect]
     Active Substance: BRIVARACETAM
     Dosage: 100 MG, 2X/DAY (BID)
     Route: 048
     Dates: start: 20180302
  19. TIZANIDINE. [Suspect]
     Active Substance: TIZANIDINE
     Indication: NECK PAIN
     Dosage: 4 MG, 4X/DAY (QID)
     Route: 048
     Dates: start: 2010

REACTIONS (13)
  - Generalised tonic-clonic seizure [Recovered/Resolved]
  - Suicidal ideation [Not Recovered/Not Resolved]
  - Dizziness [Not Recovered/Not Resolved]
  - Depression [Not Recovered/Not Resolved]
  - Borderline personality disorder [Not Recovered/Not Resolved]
  - Aggression [Not Recovered/Not Resolved]
  - Physical assault [Recovered/Resolved]
  - Diarrhoea [Recovered/Resolved]
  - Product dose omission [Unknown]
  - Suicide attempt [Recovered/Resolved]
  - Meningoencephalitis herpetic [Recovering/Resolving]
  - Suicide threat [Recovered/Resolved]
  - Concussion [Recovered/Resolved]

NARRATIVE: CASE EVENT DATE: 201804
